FAERS Safety Report 6434909-4 (Version None)
Quarter: 2009Q4

REPORT INFORMATION
  Report Type: 
  Country: None (occurrence: None)
  Receive Date: 20091110
  Receipt Date: 20091028
  Transmission Date: 20100525
  Serious: Yes (Hospitalization)
  Sender: FDA-Public Use
  Company Number: US-GENENTECH-292977

PATIENT
  Sex: Female

DRUGS (5)
  1. TRASTUZUMAB [Suspect]
     Indication: BREAST CANCER
     Dosage: 4 MG/KG, UNK
     Route: 042
     Dates: start: 20090623, end: 20090623
  2. AVASTIN [Suspect]
     Indication: BREAST CANCER
     Dosage: 146 MG, Q3W
     Route: 042
     Dates: start: 20090623
  3. DOCETAXEL [Suspect]
     Indication: BREAST CANCER
     Dosage: 141 MG, Q3W
     Route: 042
     Dates: start: 20090623
  4. CARBOPLATIN [Suspect]
     Indication: BREAST CANCER
     Dosage: 590 MG, Q3W
     Route: 042
     Dates: start: 20090623
  5. MAXZIDE [Concomitant]
     Indication: DRUG USE FOR UNKNOWN INDICATION
     Dosage: UNK
     Dates: start: 20090715

REACTIONS (8)
  - ANAEMIA [None]
  - CULTURE URINE POSITIVE [None]
  - DECREASED APPETITE [None]
  - DIZZINESS [None]
  - ESCHERICHIA INFECTION [None]
  - INFECTION [None]
  - URINARY TRACT INFECTION [None]
  - VOMITING [None]
